FAERS Safety Report 11403856 (Version 8)
Quarter: 2017Q2

REPORT INFORMATION
  Report Type: Report from Study
  Country: None (occurrence: JP)
  Receive Date: 20150821
  Receipt Date: 20170414
  Transmission Date: 20170829
  Serious: Yes (Death, Hospitalization, Other)
  Sender: FDA-Public Use
  Company Number: JP-ABBVIE-15K-087-1447994-00

PATIENT
  Age: 84 Year
  Sex: Female
  Weight: 50 kg

DRUGS (18)
  1. MESALAZINE [Concomitant]
     Active Substance: MESALAMINE
     Indication: COLITIS ULCERATIVE
     Route: 048
     Dates: start: 20150601
  2. PREDNISOLONE SODIUM SUCCINATE FOR INJECTION [Concomitant]
     Indication: COLITIS ULCERATIVE
     Route: 050
     Dates: start: 20150630, end: 20150702
  3. DIAZEPAM. [Concomitant]
     Active Substance: DIAZEPAM
     Indication: PREMEDICATION
     Route: 050
     Dates: start: 20150722, end: 20150722
  4. PREDNISOLONE SODIUM PHOSPHATE. [Concomitant]
     Active Substance: PREDNISOLONE SODIUM PHOSPHATE
     Indication: COLITIS ULCERATIVE
     Route: 054
     Dates: start: 20150625
  5. PREDNISOLONE. [Concomitant]
     Active Substance: PREDNISOLONE
     Dates: start: 20150716, end: 20150727
  6. SENNOSIDE [Concomitant]
     Active Substance: SENNOSIDES
     Indication: ENDOSCOPY LARGE BOWEL
     Route: 048
     Dates: start: 20150721, end: 20150721
  7. FLUMAZENIL. [Concomitant]
     Active Substance: FLUMAZENIL
     Indication: PREMEDICATION
     Route: 050
     Dates: start: 20150722, end: 20150722
  8. NALOXONE HYDROCHLORIDE. [Concomitant]
     Active Substance: NALOXONE HYDROCHLORIDE
     Indication: PREMEDICATION
     Route: 050
     Dates: start: 20150722, end: 20150722
  9. PREDNISOLONE. [Concomitant]
     Active Substance: PREDNISOLONE
     Indication: COLITIS ULCERATIVE
     Route: 048
     Dates: start: 20150703, end: 20150715
  10. ELENTAL [Concomitant]
     Active Substance: AMINO ACIDS\CARBOHYDRATES\MINERALS\SOYBEAN OIL\VITAMINS
     Indication: PRODUCT USED FOR UNKNOWN INDICATION
     Route: 051
     Dates: start: 20150723
  11. CEFMETAZOLE SODIUM [Concomitant]
     Active Substance: CEFMETAZOLE SODIUM
     Indication: COLITIS ULCERATIVE
     Route: 042
     Dates: start: 20150728, end: 20150730
  12. HUMIRA [Suspect]
     Active Substance: ADALIMUMAB
     Indication: COLITIS ULCERATIVE
     Route: 058
     Dates: start: 20150714, end: 20150714
  13. ESOMEPRAZOLE MAGNESIUM HYDRATE [Concomitant]
     Indication: PRODUCT USED FOR UNKNOWN INDICATION
     Route: 048
  14. MAGNESIUM CITRATE. [Concomitant]
     Active Substance: MAGNESIUM CITRATE
     Indication: ENDOSCOPY LARGE BOWEL
     Route: 048
     Dates: start: 20150721, end: 20150721
  15. PREDNISOLONE SODIUM SUCCINATE FOR INJECTION [Concomitant]
     Dates: start: 20150728, end: 20150730
  16. LACTOMIN [Concomitant]
     Active Substance: LACTOBACILLUS ACIDOPHILUS
     Indication: PRODUCT USED FOR UNKNOWN INDICATION
     Route: 048
  17. FUROSEMIDE. [Concomitant]
     Active Substance: FUROSEMIDE
     Indication: PRODUCT USED FOR UNKNOWN INDICATION
     Route: 048
  18. PETHIDINE HYDROCHLORIDE [Concomitant]
     Active Substance: MEPERIDINE HYDROCHLORIDE
     Indication: PREMEDICATION
     Route: 050
     Dates: start: 20150722, end: 20150722

REACTIONS (8)
  - Large intestine perforation [Fatal]
  - Megacolon [Fatal]
  - Large intestine perforation [Fatal]
  - Multiple organ dysfunction syndrome [Fatal]
  - Colitis [Fatal]
  - Abdominal pain [Unknown]
  - Melaena [Recovering/Resolving]
  - Anaemia [Recovering/Resolving]

NARRATIVE: CASE EVENT DATE: 2015
